FAERS Safety Report 4603822-7 (Version None)
Quarter: 2005Q1

REPORT INFORMATION
  Report Type: 
  Country: None (occurrence: None)
  Receive Date: 20050310
  Receipt Date: 20050308
  Transmission Date: 20050727
  Serious: Yes (Other)
  Sender: FDA-Public Use
  Company Number: PHEH2005US02916

PATIENT
  Age: 3 Year

DRUGS (1)
  1. ELIDEL [Suspect]
     Route: 061

REACTIONS (1)
  - LYMPHOMA [None]
